FAERS Safety Report 7803508-1 (Version None)
Quarter: 2011Q4

REPORT INFORMATION
  Report Type: 
  Country: None (occurrence: None)
  Receive Date: 20111007
  Receipt Date: 20110927
  Transmission Date: 20120403
  Serious: Yes (Other)
  Sender: FDA-Public Use
  Company Number: US-AMGEN-USASP2011049893

PATIENT
  Age: 85 Year
  Sex: Male

DRUGS (3)
  1. FOLBIC [Concomitant]
  2. PROCRIT [Suspect]
     Indication: MYELODYSPLASTIC SYNDROME
     Dosage: UNK
     Dates: start: 20110101, end: 20110101
  3. ARANESP [Suspect]
     Indication: MYELODYSPLASTIC SYNDROME
     Route: 058
     Dates: start: 20110719

REACTIONS (10)
  - LIP SWELLING [None]
  - PRURITUS [None]
  - TONGUE DISCOLOURATION [None]
  - RASH [None]
  - DYSPHAGIA [None]
  - RASH PAPULAR [None]
  - THERAPEUTIC RESPONSE DECREASED [None]
  - HYPERSENSITIVITY [None]
  - RASH ERYTHEMATOUS [None]
  - RASH GENERALISED [None]
